FAERS Safety Report 14031050 (Version 2)
Quarter: 2017Q4

REPORT INFORMATION
  Report Type: Report from Study
  Country: DE (occurrence: DE)
  Receive Date: 20171002
  Receipt Date: 20171006
  Transmission Date: 20180321
  Serious: Yes (Hospitalization)
  Sender: FDA-Public Use
  Company Number: DE-TAKEDA-2017TUS019894

PATIENT
  Age: 39 Year
  Sex: Female

DRUGS (1)
  1. VEDOLIZUMAB [Suspect]
     Active Substance: VEDOLIZUMAB
     Indication: CROHN^S DISEASE
     Dosage: UNK
     Route: 042
     Dates: start: 201601, end: 201611

REACTIONS (2)
  - Abscess [Not Recovered/Not Resolved]
  - Condition aggravated [Unknown]
